FAERS Safety Report 6393070-5 (Version None)
Quarter: 2009Q4

REPORT INFORMATION
  Report Type: 
  Country: None (occurrence: None)
  Receive Date: 20091008
  Receipt Date: 20090909
  Transmission Date: 20100525
  Serious: No
  Sender: FDA-Public Use
  Company Number: US-BAYER-200914334BCC

PATIENT
  Age: 77 Year
  Sex: Female
  Weight: 68 kg

DRUGS (10)
  1. ALEVE [Suspect]
     Indication: BACK PAIN
     Dosage: TOTAL DAILY DOSE: 660 MG  UNIT DOSE: 220 MG
     Route: 048
     Dates: start: 20090801, end: 20090801
  2. ALPHAGAN [Concomitant]
     Route: 065
  3. FLEXERIL [Concomitant]
     Route: 065
  4. TOPROL-XL [Concomitant]
     Route: 065
  5. NORVASC [Concomitant]
     Route: 065
  6. HYZAAR [Concomitant]
     Route: 065
  7. UNKNOWN MULTIVITAMIN [Concomitant]
     Route: 065
  8. CALCIUM WITH D [Concomitant]
     Route: 065
  9. VITAMIN E [Concomitant]
     Route: 065
  10. MOBIC [Concomitant]
     Route: 065

REACTIONS (1)
  - NAUSEA [None]
